FAERS Safety Report 11433701 (Version 2)
Quarter: 2015Q3

REPORT INFORMATION
  Report Type: Spontaneous
  Country: US (occurrence: US)
  Receive Date: 20150831
  Receipt Date: 20150831
  Transmission Date: 20151125
  Serious: No
  Sender: FDA-Public Use
  Company Number: PHEH2015US016370

PATIENT
  Sex: Female

DRUGS (3)
  1. DICLOFENAC [Suspect]
     Active Substance: DICLOFENAC
     Indication: PRODUCT USED FOR UNKNOWN INDICATION
     Dosage: 100 MG, UNK
     Route: 065
  2. CYTOTEC [Suspect]
     Active Substance: MISOPROSTOL
     Dosage: 0.5 DF (HALF OF 200 MG), UNK
     Route: 065
  3. CYTOTEC [Suspect]
     Active Substance: MISOPROSTOL
     Indication: GASTRIC DISORDER
     Dosage: 100 MG, UNK
     Route: 065

REACTIONS (4)
  - Haemorrhage [Unknown]
  - Gait disturbance [Unknown]
  - Drug dispensing error [Unknown]
  - Limb discomfort [Unknown]
